FAERS Safety Report 4881506-8 (Version None)
Quarter: 2005Q4

REPORT INFORMATION
  Report Type: 
  Country: None (occurrence: None)
  Receive Date: 20051201
  Receipt Date: 20050729
  Transmission Date: 20060501
  Serious: No
  Sender: FDA-Public Use
  Company Number: 2005PV000666

PATIENT
  Age: 57 Year
  Sex: Male
  Weight: 117.9352 kg

DRUGS (9)
  1. BYETTA [Suspect]
     Indication: DIABETES MELLITUS NON-INSULIN-DEPENDENT
     Dosage: 5 MCG;QD;SC
     Route: 058
     Dates: start: 20050728
  2. ZOCOR [Concomitant]
  3. HYZAAR [Concomitant]
  4. CAPTOPRIL [Concomitant]
  5. MULTIVITAMIN [Concomitant]
  6. ASPIRIN [Concomitant]
  7. LANTUS [Concomitant]
  8. GLUCOPHAGE [Concomitant]
  9. AVANDIA [Concomitant]

REACTIONS (3)
  - BLOOD GLUCOSE INCREASED [None]
  - DRUG INEFFECTIVE [None]
  - NAUSEA [None]
